FAERS Safety Report 7496081-1 (Version None)
Quarter: 2011Q2

REPORT INFORMATION
  Report Type: 
  Country: None (occurrence: None)
  Receive Date: 20110523
  Receipt Date: 20110516
  Transmission Date: 20111010
  Serious: Yes (Other)
  Sender: FDA-Public Use
  Company Number: US-SANOFI-AVENTIS-2011SA026819

PATIENT
  Age: 82 Year
  Sex: Female
  Weight: 85 kg

DRUGS (12)
  1. OPTICLICK [Suspect]
     Indication: TYPE 2 DIABETES MELLITUS
     Dates: start: 20091001
  2. DOXAZOSIN MESYLATE [Concomitant]
  3. LISINOPRIL [Concomitant]
  4. ASPIRIN [Concomitant]
     Indication: PROPHYLAXIS
  5. BUMETANIDE [Concomitant]
  6. SYNTHROID [Concomitant]
     Indication: THYROID DISORDER
     Dates: start: 20030101
  7. LIPITOR [Concomitant]
     Dates: end: 20110401
  8. NORVASC [Concomitant]
  9. LANTUS [Suspect]
     Indication: TYPE 2 DIABETES MELLITUS
     Dosage: 13-40 UNITS DOSE:24 UNIT(S)
     Route: 058
     Dates: start: 20020101
  10. SPIRONOLACTONE [Concomitant]
  11. NEBIVOLOL HCL [Concomitant]
  12. PHENYTOIN [Concomitant]
     Dates: start: 20030101

REACTIONS (1)
  - MACULAR DEGENERATION [None]
